FAERS Safety Report 5929594-1 (Version None)
Quarter: 2008Q4

REPORT INFORMATION
  Report Type: 
  Country: None (occurrence: None)
  Receive Date: 20081024
  Receipt Date: 20081013
  Transmission Date: 20090506
  Serious: Yes (Death)
  Sender: FDA-Public Use
  Company Number: US-ROCHE-591152

PATIENT
  Sex: Female
  Weight: 44 kg

DRUGS (4)
  1. CAPECITABINE [Suspect]
     Indication: GASTRIC CANCER
     Dosage: DOSE: 1000 MG AM, 500 MG PM. OTHER INDICATION: COLORECTAL CANCER
     Route: 065
     Dates: start: 20080706, end: 20080929
  2. OXALIPLATIN [Concomitant]
     Indication: GASTRIC CANCER
     Dates: start: 20080706
  3. EPIRUBICIN [Concomitant]
     Indication: GASTRIC CANCER
     Dates: start: 20080706
  4. TAXOL [Concomitant]
     Indication: GASTRIC CANCER
     Dates: end: 20080929

REACTIONS (1)
  - GASTRIC CANCER [None]
